FAERS Safety Report 23192121 (Version 1)
Quarter: 2023Q4

REPORT INFORMATION
  Report Type: Spontaneous
  Country: JP (occurrence: JP)
  Receive Date: 20231116
  Receipt Date: 20231116
  Transmission Date: 20240110
  Serious: Yes (Other)
  Sender: FDA-Public Use
  Company Number: JP-DSJP-DSJ-2023-145976

PATIENT
  Age: 8 Decade
  Sex: Female

DRUGS (1)
  1. DENOSUMAB [Suspect]
     Active Substance: DENOSUMAB
     Indication: Metastases to bone
     Dosage: UNK, ONCE EVERY 2 MO
     Route: 058

REACTIONS (3)
  - Osteonecrosis of jaw [Unknown]
  - Alveolar bone resorption [Unknown]
  - Off label use [Unknown]
